FAERS Safety Report 17900602 (Version 1)
Quarter: 2020Q2

REPORT INFORMATION
  Report Type: Spontaneous
  Country: BR (occurrence: BR)
  Receive Date: 20200616
  Receipt Date: 20200616
  Transmission Date: 20200714
  Serious: Yes (Other)
  Sender: FDA-Public Use
  Company Number: BR-JNJFOC-20200616102

PATIENT
  Sex: Male

DRUGS (1)
  1. HALDOL [Suspect]
     Active Substance: HALOPERIDOL
     Indication: INSOMNIA
     Route: 065

REACTIONS (6)
  - Homicidal ideation [Unknown]
  - Product use in unapproved indication [Unknown]
  - Nerve injury [Unknown]
  - Coronary artery occlusion [Unknown]
  - Tremor [Unknown]
  - Off label use [Unknown]
